FAERS Safety Report 9954625 (Version 1)
Quarter: 2014Q1

REPORT INFORMATION
  Report Type: Report from Study
  Country: US (occurrence: US)
  Receive Date: 20140304
  Receipt Date: 20140304
  Transmission Date: 20141002
  Serious: No
  Sender: FDA-Public Use
  Company Number: US-ABBVIE-13P-163-1084117-00

PATIENT
  Sex: Male

DRUGS (4)
  1. HUMIRA [Suspect]
     Indication: RHEUMATOID ARTHRITIS
     Route: 058
     Dates: start: 201301, end: 20130503
  2. HUMIRA [Suspect]
     Indication: ANKYLOSING SPONDYLITIS
  3. TRAMADOL [Concomitant]
     Indication: PRODUCT USED FOR UNKNOWN INDICATION
  4. LIPITOR [Concomitant]
     Dates: start: 20130114

REACTIONS (2)
  - Faeces pale [Not Recovered/Not Resolved]
  - Abdominal pain [Not Recovered/Not Resolved]
